FAERS Safety Report 5453678-8 (Version None)
Quarter: 2007Q3

REPORT INFORMATION
  Report Type: 
  Country: None (occurrence: None)
  Receive Date: 20070917
  Receipt Date: 20070905
  Transmission Date: 20080115
  Serious: Yes (Death, Hospitalization)
  Sender: FDA-Public Use
  Company Number: US-AVENTIS-200715559US

PATIENT
  Sex: Female
  Weight: 74.8 kg

DRUGS (4)
  1. TAXOTERE [Suspect]
     Dosage: DOSE: UNK, EVERY 3-6 WEEKS
     Route: 042
     Dates: start: 20061001, end: 20070301
  2. DEXAMETHASONE 0.5MG TAB [Concomitant]
     Dosage: DOSE: UNK
  3. CARBOPLATIN [Concomitant]
     Dosage: DOSE: UNK
  4. AVASTIN [Concomitant]
     Dosage: DOSE: UNK

REACTIONS (2)
  - DYSPNOEA [None]
  - PLEURAL EFFUSION [None]
